FAERS Safety Report 9245814 (Version 2)
Quarter: 2013Q2

REPORT INFORMATION
  Report Type: Spontaneous
  Country: US (occurrence: US)
  Receive Date: 20130422
  Receipt Date: 20130611
  Transmission Date: 20140414
  Serious: No
  Sender: FDA-Public Use
  Company Number: US-PFIZER INC-2013120921

PATIENT
  Age: 69 Year
  Sex: Female
  Weight: 58.5 kg

DRUGS (13)
  1. PREMARIN [Suspect]
     Indication: HORMONE REPLACEMENT THERAPY
     Dosage: UNK
     Dates: start: 1979
  2. PREMARIN [Suspect]
     Dosage: 0.03 MG, 1X/DAY
     Route: 048
  3. PREMARIN [Suspect]
     Dosage: 0.3 MG, 1X/DAY
     Route: 048
     Dates: start: 20130226
  4. CELEBREX [Concomitant]
     Dosage: 200 MG, 1X/DAY
  5. FISH OIL [Concomitant]
     Dosage: UNK
  6. CALCIUM [Concomitant]
     Dosage: UNK
  7. FLAXSEED OIL [Concomitant]
     Dosage: UNK
  8. VITAMIN C [Concomitant]
     Dosage: UNK
  9. ONE A DAY WOMEN^S [Concomitant]
     Dosage: UNK
  10. PREVACID [Concomitant]
     Dosage: 30 MG, 1X/DAY
     Route: 048
  11. ASA [Concomitant]
     Dosage: 326 MG, UNK
  12. GLUCOSAMINE/CHONDROITIN [Concomitant]
     Dosage: UNK
  13. GINKO BILOBA [Concomitant]
     Dosage: UNK

REACTIONS (5)
  - Drug ineffective [Unknown]
  - Hyperhidrosis [Recovered/Resolved]
  - Hot flush [Unknown]
  - Discomfort [Unknown]
  - Insomnia [Unknown]
